FAERS Safety Report 24892357 (Version 1)
Quarter: 2025Q1

REPORT INFORMATION
  Report Type: Spontaneous
  Country: ZA (occurrence: ZA)
  Receive Date: 20250128
  Receipt Date: 20250128
  Transmission Date: 20250409
  Serious: Yes (Hospitalization)
  Sender: AMGEN
  Company Number: ZA-SERVIER-S24018331

PATIENT
  Age: 64 Year
  Sex: Female

DRUGS (31)
  1. IVABRADINE HYDROCHLORIDE [Suspect]
     Active Substance: IVABRADINE HYDROCHLORIDE
     Indication: Angina pectoris
     Dosage: 5 MG TAKE ONE TABLET TWICE A DAY
     Route: 048
  2. POTASSIUM CHLORIDE [Concomitant]
     Active Substance: POTASSIUM CHLORIDE
     Indication: Hypokalaemia
     Dosage: 600 MG FOUR DAILY
     Route: 048
  3. Synaleve [Concomitant]
     Indication: Pain
     Dosage: TAKE TWO CAPSULES TWICE A DAY WHEN NECESSESSA RY
     Route: 048
  4. THEOPHYLLINE ANHYDROUS [Concomitant]
     Active Substance: THEOPHYLLINE ANHYDROUS
     Indication: Bronchospasm
     Dosage: 200 MG TAKE ONE TABLET TWICE A DAY
     Route: 048
  5. BUDESONIDE\FORMOTEROL FUMARATE DIHYDRATE [Concomitant]
     Active Substance: BUDESONIDE\FORMOTEROL FUMARATE DIHYDRATE
     Indication: Asthma
     Dosage: 2 DF, BID
     Route: 055
  6. LEFLUNOMIDE [Concomitant]
     Active Substance: LEFLUNOMIDE
     Indication: Rheumatoid arthritis
     Dosage: 20 MG TAKE ONE TABLET DAILY
     Route: 048
  7. ERGOCALCIFEROL [Concomitant]
     Active Substance: ERGOCALCIFEROL
     Indication: Product used for unknown indication
     Dosage: 50000 IU TAKE ONE TABLET WEEKLY
     Route: 048
  8. Spiractin [Concomitant]
     Indication: Hypertension
     Dosage: 25 MG TAKE ONE TABLET DAILY
     Route: 048
  9. RISPERIDONE [Concomitant]
     Active Substance: RISPERIDONE
     Indication: Mental disorder
     Dosage: 0.5 MG TAKE ONE TABLET AT NIGHT
     Route: 048
  10. BISOPROLOL FUMARATE\HYDROCHLOROTHIAZIDE [Concomitant]
     Active Substance: BISOPROLOL FUMARATE\HYDROCHLOROTHIAZIDE
     Indication: Hypertension
     Dosage: 10/6.25 MG TAKE ONE TABLET IN THE MORNING
     Route: 048
  11. AMLODIPINE BESYLATE [Concomitant]
     Active Substance: AMLODIPINE BESYLATE
     Indication: Hypertension
     Dosage: 10 MG TAKE ONE TABLET DAILY
     Route: 048
  12. MELOXICAM [Concomitant]
     Active Substance: MELOXICAM
     Indication: Pain
     Dosage: 15 MG TAKE ONE TABLET ONCE DAILY AFTER FOOD
     Route: 048
  13. METHOTREXATE SODIUM [Concomitant]
     Active Substance: METHOTREXATE SODIUM
     Indication: Rheumatoid arthritis
     Dosage: 2.5 MG TAKE EIGHT TABLETS ONCE A WEEK
     Route: 048
  14. FOLIC ACID [Concomitant]
     Active Substance: FOLIC ACID
     Indication: Coronary artery disease
     Dosage: 5 MG TAKE ONE TABLET IN THE MORNING
     Route: 048
  15. PREDNISONE [Concomitant]
     Active Substance: PREDNISONE
     Indication: Product used for unknown indication
     Dosage: 5 MG TAKE ONE TABLET ONCE DAILY AFTER FOOD
     Route: 048
  16. SULFASALAZINE [Concomitant]
     Active Substance: SULFASALAZINE
     Indication: Colitis ulcerative
     Dosage: 500 MG TAKE TWO TABLETS TWICE A DAY
     Route: 048
  17. Lipogen [Concomitant]
     Indication: Blood cholesterol abnormal
     Dosage: 10 MG TAKE ONE TABLET AT NIGHT
     Route: 048
  18. TORSEMIDE [Concomitant]
     Active Substance: TORSEMIDE
     Indication: Hypertension
     Dosage: 10 MG TAKE ONE TABLET IN THE MORNING
     Route: 048
  19. MEMANTINE UNICHEM [Concomitant]
     Indication: Dementia Alzheimer^s type
     Dosage: 10 MG TAKE ONE TABLET AT NIGHT
     Route: 048
  20. VAGIFEM [Concomitant]
     Active Substance: ESTRADIOL
     Indication: Hormone replacement therapy
     Dosage: 10 MCG INSERT ONE PER VAGINA TWICE A WEEK
     Route: 067
  21. DULOXETINE HYDROCHLORIDE [Concomitant]
     Active Substance: DULOXETINE HYDROCHLORIDE
     Indication: Depression
     Dosage: 60 MG TAKE ONE CAPSULE AT NIGHT
     Route: 048
  22. DULOXETINE HYDROCHLORIDE [Concomitant]
     Active Substance: DULOXETINE HYDROCHLORIDE
     Indication: Pain
  23. TOPIRAMATE [Concomitant]
     Active Substance: TOPIRAMATE
     Indication: Epilepsy
     Dosage: 100 MG TAKE ONE TABLET TWICE A DAY
     Route: 048
  24. CLOBAZAM [Concomitant]
     Active Substance: CLOBAZAM
     Indication: Anxiety
     Dosage: 10 MG TAKE ONE TABLET TWICE A DAY
     Route: 048
  25. ALPRAZOLAM [Concomitant]
     Active Substance: ALPRAZOLAM
     Indication: Anxiety
     Dosage: 0.5 MG TAKE ONE TABLET TWICE A DAY
     Route: 048
  26. ECOTRIN [Concomitant]
     Active Substance: ASPIRIN
     Indication: Anticoagulant therapy
     Dosage: 81 MG TAKE ONE TABLET AT NIGHT
     Route: 048
  27. IBUPAIN [Concomitant]
     Indication: Product used for unknown indication
     Dosage: TAKE TWO CAPSULES THREE TIMES A DAY
     Route: 048
  28. ANDOLEX C [Concomitant]
     Indication: Product used for unknown indication
     Route: 048
  29. SOLPHYLLEX [Concomitant]
     Indication: Product used for unknown indication
     Dosage: 2 DF, TID
     Route: 048
  30. DICLOFENAC [Concomitant]
     Active Substance: DICLOFENAC
     Indication: Product used for unknown indication
     Dosage: 0.74 MG GARGLE EIGHT HOURLY AS DIRECTED
     Route: 048
  31. LEVOFLOXACIN [Concomitant]
     Active Substance: LEVOFLOXACIN
     Indication: Product used for unknown indication
     Dosage: 500 MG TAKE ONE TABLET ONCE DAILY
     Route: 048

REACTIONS (1)
  - Hospitalisation [Unknown]
